FAERS Safety Report 12420880 (Version 5)
Quarter: 2016Q3

REPORT INFORMATION
  Report Type: Report from Study
  Country: US (occurrence: US)
  Receive Date: 20160531
  Receipt Date: 20160704
  Transmission Date: 20161109
  Serious: Yes (Hospitalization, Other)
  Sender: FDA-Public Use
  Company Number: US-JNJFOC-20160524204

PATIENT
  Sex: Female

DRUGS (3)
  1. IMBRUVICA [Suspect]
     Active Substance: IBRUTINIB
     Indication: CHRONIC LYMPHOCYTIC LEUKAEMIA
     Route: 048
     Dates: start: 20160512
  2. MIRALAX [Concomitant]
     Active Substance: POLYETHYLENE GLYCOL 3350
  3. VALACYCLOVIR [Concomitant]
     Active Substance: VALACYCLOVIR HYDROCHLORIDE

REACTIONS (14)
  - Abdominal pain [Not Recovered/Not Resolved]
  - Mouth haemorrhage [Unknown]
  - Blood count abnormal [Not Recovered/Not Resolved]
  - Thrombosis [Unknown]
  - Bronchitis [Unknown]
  - Constipation [Unknown]
  - Dehydration [Unknown]
  - Haemoglobin decreased [Unknown]
  - Erythema [Unknown]
  - Hyperhidrosis [Unknown]
  - Pyrexia [Unknown]
  - Heart rate increased [Not Recovered/Not Resolved]
  - Epistaxis [Unknown]
  - Blood pressure decreased [Unknown]

NARRATIVE: CASE EVENT DATE: 2016
